FAERS Safety Report 9243314 (Version 1)
Quarter: 2013Q2

REPORT INFORMATION
  Report Type: Report from Study
  Country: US (occurrence: US)
  Receive Date: 20130419
  Receipt Date: 20130419
  Transmission Date: 20140414
  Serious: Yes (Hospitalization)
  Sender: FDA-Public Use
  Company Number: US-MERCK-1304USA007732

PATIENT
  Age: 43 Year
  Sex: Male
  Weight: 90.9 kg

DRUGS (12)
  1. VORINOSTAT [Suspect]
     Indication: DIFFUSE LARGE B-CELL LYMPHOMA
     Dosage: 400 MG PO QD ON DAYS 1-5/
     Route: 048
     Dates: start: 20130326
  2. VORINOSTAT [Suspect]
     Dosage: 400 MG PO QD ON DAYS 1-5/
     Route: 048
     Dates: start: 20121105, end: 20121126
  3. RITUXIMAB [Suspect]
     Indication: DIFFUSE LARGE B-CELL LYMPHOMA
     Dosage: 375MG/M2 IV INFUSION ON DAY 3/CYCLE = 21 DAYS: (MAXIMUM = 8 CYCLES)
     Route: 042
     Dates: start: 20130328
  4. RITUXIMAB [Suspect]
     Dosage: 375MG/M2 IV INFUSION ON DAY 3/CYCLE = 21 DAYS: (MAXIMUM = 8 CYCLES)
     Route: 042
     Dates: start: 20121107, end: 20121107
  5. CYCLOPHOSPHAMIDE [Suspect]
     Indication: DIFFUSE LARGE B-CELL LYMPHOMA
     Dosage: 750MG/M2 IV OVER 30-60 MINUTES ON DAY 3/CYCLE = 21 DAYS: (MAXIMUM = 8 CYCLES)
     Route: 042
     Dates: start: 20130328
  6. CYCLOPHOSPHAMIDE [Suspect]
     Dosage: 750MG/M2 IV OVER 30-60 MINUTES ON DAY 3/CYCLE = 21 DAYS: (MAXIMUM = 8 CYCLES)
     Route: 042
     Dates: start: 20121107, end: 20121107
  7. DOXORUBICIN [Suspect]
     Indication: DIFFUSE LARGE B-CELL LYMPHOMA
     Dosage: 50 MG/M2 IVP ON DAY 3/CYCLE = 21 DAYS: (MAXIMUM = 8 CYCLES)
     Route: 042
     Dates: start: 20130328
  8. DOXORUBICIN [Suspect]
     Dosage: 50 MG/M2 IVP ON DAY 3/CYCLE = 21 DAYS: (MAXIMUM = 8 CYCLES)
     Route: 042
     Dates: start: 20121107, end: 20121107
  9. VINCRISTINE [Suspect]
     Indication: DIFFUSE LARGE B-CELL LYMPHOMA
     Dosage: 1.4 MG/M2 IVP ON DAY 3/CYCLE = 21 DAYS: (MAXIMUM = 8 CYCLES)
     Route: 042
     Dates: start: 20130328
  10. VINCRISTINE [Suspect]
     Dosage: 1.4 MG/M2 IVP ON DAY 3/CYCLE = 21 DAYS: (MAXIMUM = 8 CYCLES)
     Route: 042
     Dates: start: 20121107, end: 20121107
  11. PREDNISONE [Suspect]
     Indication: DIFFUSE LARGE B-CELL LYMPHOMA
     Dosage: 100 MG PO QD ON DAYS 3-7/CYCLE = 21 DAYS: (MAXIMUM = 8 CYCLES)
     Route: 048
     Dates: start: 20130328
  12. PREDNISONE [Suspect]
     Dosage: 100 MG PO QD ON DAYS 3-7/CYCLE = 21 DAYS: (MAXIMUM = 8 CYCLES)
     Route: 048
     Dates: start: 20121107, end: 20121111

REACTIONS (1)
  - Febrile neutropenia [Recovered/Resolved]
